FAERS Safety Report 7744771-5 (Version None)
Quarter: 2011Q3

REPORT INFORMATION
  Report Type: 
  Country: None (occurrence: None)
  Receive Date: 20110912
  Receipt Date: 20110912
  Transmission Date: 20111222
  Serious: Yes (Other)
  Sender: FDA-Public Use
  Company Number: None

PATIENT
  Sex: Male
  Weight: 71.667 kg

DRUGS (1)
  1. DIVALPROEX SODIUM [Suspect]
     Indication: EPILEPSY
     Dosage: 2 TABLETS
     Route: 048
     Dates: start: 20080822, end: 20110909

REACTIONS (2)
  - DRUG DISPENSING ERROR [None]
  - PRODUCT SUBSTITUTION ISSUE [None]
